FAERS Safety Report 13426200 (Version 1)
Quarter: 2017Q2

REPORT INFORMATION
  Report Type: Spontaneous
  Country: US (occurrence: US)
  Receive Date: 20170410
  Receipt Date: 20170410
  Transmission Date: 20170830
  Serious: Yes (Congenital Anomaly, Other)
  Sender: FDA-Public Use
  Company Number: None

PATIENT
  Age: 29 Year
  Sex: Female
  Weight: 117.4 kg

DRUGS (13)
  1. PROPANOLOL [Concomitant]
     Active Substance: PROPRANOLOL HYDROCHLORIDE
  2. XNANX [Concomitant]
  3. MAGNESIUM [Concomitant]
     Active Substance: MAGNESIUM
  4. BABY ASPRIN [Concomitant]
     Active Substance: ASPIRIN
  5. TENS UNIT [Concomitant]
  6. VITAMIN C [Concomitant]
     Active Substance: ASCORBIC ACID
  7. ZOLOFT [Concomitant]
     Active Substance: SERTRALINE HYDROCHLORIDE
  8. LYRICA [Suspect]
     Active Substance: PREGABALIN
     Indication: FIBROMYALGIA
     Dosage: ?          QUANTITY:1 CAPSULE(S);?
     Route: 048
     Dates: end: 20160321
  9. VITAMIN D3 [Concomitant]
     Active Substance: CHOLECALCIFEROL
  10. PRENATAL [Concomitant]
     Active Substance: VITAMINS
  11. CPAP [Concomitant]
     Active Substance: DEVICE
  12. OMPEREZOLE [Concomitant]
  13. DOTERRA ESSENTIAL OILS [Concomitant]

REACTIONS (4)
  - Caesarean section [None]
  - Growth retardation [None]
  - Foetal growth restriction [None]
  - Exposure during pregnancy [None]

NARRATIVE: CASE EVENT DATE: 20160122
